FAERS Safety Report 14676710 (Version 1)
Quarter: 2018Q1

REPORT INFORMATION
  Report Type: Report from Study
  Country: US (occurrence: US)
  Receive Date: 20180324
  Receipt Date: 20180324
  Transmission Date: 20180509
  Serious: Yes (Other)
  Sender: FDA-Public Use
  Company Number: US-ROCHE-2087676

PATIENT
  Sex: Male
  Weight: 102.6 kg

DRUGS (24)
  1. ANDROGEL [Concomitant]
     Active Substance: TESTOSTERONE
     Dosage: IN THE MORNING TO UPPER ARM AND SHOULDER FOR 90DAYS
     Route: 061
     Dates: start: 20140116
  2. ASPIRIN. [Concomitant]
     Active Substance: ASPIRIN
     Dosage: FOR 30 DAYS
     Route: 048
     Dates: start: 20130822
  3. VITAMIN B12 [Concomitant]
     Active Substance: CYANOCOBALAMIN
     Route: 065
     Dates: start: 20150424
  4. FERROUS SULFATE. [Concomitant]
     Active Substance: FERROUS SULFATE
     Dosage: 1 TABLET
     Route: 048
     Dates: start: 20140105
  5. ISOSORBIDE MONONITRAT [Concomitant]
     Dosage: FOR 30DAYS
     Route: 048
  6. NITROGLYCERIN. [Concomitant]
     Active Substance: NITROGLYCERIN
     Route: 060
  7. SYNTHROID [Concomitant]
     Active Substance: LEVOTHYROXINE SODIUM
     Route: 048
     Dates: start: 20130822
  8. BENADRYL [Concomitant]
     Active Substance: DIPHENHYDRAMINE HYDROCHLORIDE
     Route: 048
  9. PANTOPRAZOLE [Concomitant]
     Active Substance: PANTOPRAZOLE
     Route: 048
     Dates: start: 20131204
  10. SUCRALFATE. [Concomitant]
     Active Substance: SUCRALFATE
     Dosage: AN AN EMPTY STOMACH 1 HOUR BEFORE MEALS AND AT BEDTIME FOR 30DAYS
     Route: 048
     Dates: start: 20131204
  11. NORCO [Concomitant]
     Active Substance: ACETAMINOPHEN\HYDROCODONE BITARTRATE
     Route: 048
     Dates: start: 20151029
  12. POTASSIUM CHLORIDE. [Concomitant]
     Active Substance: POTASSIUM CHLORIDE
     Route: 048
     Dates: start: 20150420
  13. XANAX [Concomitant]
     Active Substance: ALPRAZOLAM
     Route: 048
     Dates: start: 20131204
  14. ATENOLOL. [Concomitant]
     Active Substance: ATENOLOL
     Dosage: FOR 30DAYS
     Route: 048
     Dates: start: 20131204
  15. LORCET (UNITED STATES) [Concomitant]
     Dosage: FOR 30DAYS
     Route: 048
     Dates: start: 20131204
  16. VITAMIN B12 [Concomitant]
     Active Substance: CYANOCOBALAMIN
     Route: 065
     Dates: start: 20130822
  17. FUROSEMIDE. [Concomitant]
     Active Substance: FUROSEMIDE
     Route: 048
  18. EPIPEN [Concomitant]
     Active Substance: EPINEPHRINE
     Route: 030
  19. NUTROPIN AQ [Suspect]
     Active Substance: SOMATROPIN
     Indication: HYPOPITUITARISM
     Route: 058
  20. AMLODIPINE [Concomitant]
     Active Substance: AMLODIPINE BESYLATE
     Route: 048
  21. HYDROCORTISONE. [Concomitant]
     Active Substance: HYDROCORTISONE
     Dosage: WITH FOOD FOR 30 DAYS
     Route: 048
     Dates: start: 20131204
  22. SIMVASTATIN. [Concomitant]
     Active Substance: SIMVASTATIN
     Dosage: EVENING FOR 30DAYS
     Route: 048
     Dates: start: 20131204
  23. TRAZODONE [Concomitant]
     Active Substance: TRAZODONE HYDROCHLORIDE
     Route: 048
     Dates: start: 20150819
  24. RESTORIL [Concomitant]
     Active Substance: TEMAZEPAM
     Dosage: AT BEDTIME FOR 30DAYS
     Route: 048
     Dates: start: 20131204

REACTIONS (14)
  - Chest pain [Unknown]
  - Asthenia [Unknown]
  - Insomnia [Unknown]
  - Fatigue [Unknown]
  - Nausea [Unknown]
  - Pneumonia [Unknown]
  - Malaise [Unknown]
  - Pyrexia [Unknown]
  - Oedema [Unknown]
  - Nocturia [Unknown]
  - Formication [Unknown]
  - Balance disorder [Unknown]
  - Arthralgia [Unknown]
  - Muscle spasms [Unknown]
